FAERS Safety Report 8379475-1 (Version None)
Quarter: 2012Q2

REPORT INFORMATION
  Report Type: 
  Country: None (occurrence: None)
  Receive Date: 20120523
  Receipt Date: 20120511
  Transmission Date: 20120825
  Serious: Yes (Other)
  Sender: FDA-Public Use
  Company Number: FR-JNJFOC-20120408997

PATIENT
  Age: 40 Year
  Sex: Male

DRUGS (4)
  1. REMICADE [Suspect]
     Route: 042
     Dates: start: 20060101, end: 20080101
  2. REMICADE [Suspect]
     Dosage: 19 TH INFUSION
     Route: 042
     Dates: start: 20120416
  3. METHOTREXATE [Concomitant]
  4. REMICADE [Suspect]
     Indication: PSORIASIS
     Route: 042
     Dates: start: 20120328

REACTIONS (3)
  - DRUG HYPERSENSITIVITY [None]
  - ANAPHYLACTOID REACTION [None]
  - INFUSION RELATED REACTION [None]
